FAERS Safety Report 15492222 (Version 2)
Quarter: 2018Q4

REPORT INFORMATION
  Report Type: Spontaneous
  Country: FR (occurrence: FR)
  Receive Date: 20181012
  Receipt Date: 20181026
  Transmission Date: 20190205
  Serious: Yes (Other)
  Sender: FDA-Public Use
  Company Number: FR-AUROBINDO-AUR-APL-2018-050143

PATIENT
  Age: 47 Year
  Sex: Female
  Weight: 48 kg

DRUGS (4)
  1. OLANZAPINE. [Suspect]
     Active Substance: OLANZAPINE
     Indication: MANIA
  2. LOXAPINE. [Concomitant]
     Active Substance: LOXAPINE
     Indication: MANIA
     Dosage: UNK
     Route: 048
  3. OLANZAPINE. [Suspect]
     Active Substance: OLANZAPINE
     Indication: MANIA
     Dosage: 1 DOSAGE FORM
     Route: 048
     Dates: start: 20180817, end: 20180831
  4. DIAZEPAM. [Concomitant]
     Active Substance: DIAZEPAM
     Indication: MANIA
     Dosage: UNK
     Route: 048

REACTIONS (1)
  - Hepatocellular injury [Recovered/Resolved]

NARRATIVE: CASE EVENT DATE: 20180829
